FAERS Safety Report 7785967-6 (Version None)
Quarter: 2011Q3

REPORT INFORMATION
  Report Type: 
  Country: None (occurrence: None)
  Receive Date: 20110929
  Receipt Date: 20110702
  Transmission Date: 20111222
  Serious: No
  Sender: FDA-Public Use
  Company Number: US-BAYER-2011-059278

PATIENT
  Sex: Male

DRUGS (3)
  1. ACETAMINOPHEN [Concomitant]
     Dosage: 3 TYLENOL
  2. ORAJEL [Concomitant]
     Dosage: 2 ORAJELS
  3. ALEVE (CAPLET) [Suspect]
     Dosage: 2 ALEVE
     Route: 048

REACTIONS (1)
  - DRUG INEFFECTIVE [None]
